FAERS Safety Report 7254309-7 (Version None)
Quarter: 2011Q1

REPORT INFORMATION
  Report Type: 
  Country: None (occurrence: None)
  Receive Date: 20110129
  Receipt Date: 20100119
  Transmission Date: 20110831
  Serious: No
  Sender: FDA-Public Use
  Company Number: US-ABBOTT-10P-163-0621524-00

PATIENT
  Age: 9 Year
  Sex: Female

DRUGS (3)
  1. FOLIC ACID [Concomitant]
     Indication: JUVENILE ARTHRITIS
     Dates: end: 20091201
  2. METHOTREXATE [Concomitant]
     Indication: JUVENILE ARTHRITIS
     Dates: end: 20091201
  3. HUMIRA [Suspect]
     Indication: JUVENILE ARTHRITIS
     Dosage: PUT ON HOLD
     Route: 058
     Dates: start: 20090901, end: 20091201

REACTIONS (1)
  - UPPER RESPIRATORY TRACT INFECTION [None]
